FAERS Safety Report 6710729-8 (Version None)
Quarter: 2010Q2

REPORT INFORMATION
  Report Type: 
  Country: None (occurrence: None)
  Receive Date: 20100504
  Receipt Date: 20100504
  Transmission Date: 20101027
  Serious: Yes (Hospitalization)
  Sender: FDA-Public Use
  Company Number: None

PATIENT
  Age: 42 Year
  Sex: Female
  Weight: 75.9 kg

DRUGS (1)
  1. PREDNISONE [Suspect]
     Indication: EXPOSURE TO TOXIC AGENT
     Dosage: 20 MG 3-4 DAYS, 2-4 DAYS.. BY MOUTH
     Route: 048
     Dates: start: 20091129, end: 20091209

REACTIONS (18)
  - ACTIVITIES OF DAILY LIVING IMPAIRED [None]
  - ANXIETY [None]
  - ASTHENIA [None]
  - DISTRACTIBILITY [None]
  - DISTURBANCE IN ATTENTION [None]
  - DYSPEPSIA [None]
  - FAECES DISCOLOURED [None]
  - FLATULENCE [None]
  - HYPOAESTHESIA [None]
  - INSOMNIA [None]
  - JUDGEMENT IMPAIRED [None]
  - MANIA [None]
  - MELAENA [None]
  - MEMORY IMPAIRMENT [None]
  - NERVOUSNESS [None]
  - PARANOIA [None]
  - PSYCHOMOTOR HYPERACTIVITY [None]
  - SPEECH DISORDER [None]
